FAERS Safety Report 17409232 (Version 3)
Quarter: 2020Q1

REPORT INFORMATION
  Report Type: Spontaneous
  Country: JP (occurrence: JP)
  Receive Date: 20200212
  Receipt Date: 20200306
  Transmission Date: 20200409
  Serious: Yes (Life-Threatening, Hospitalization, Other)
  Sender: FDA-Public Use
  Company Number: JP-PFIZER INC-2020055321

PATIENT
  Age: 65 Year
  Sex: Female
  Weight: 45 kg

DRUGS (2)
  1. CONSTAN [ALPRAZOLAM] [Suspect]
     Active Substance: ALPRAZOLAM
     Dosage: 0.4 MG, 3X/DAY
     Route: 048
  2. LYRICA [Suspect]
     Active Substance: PREGABALIN
     Indication: NEURALGIA
     Dosage: 25 MG, 3X/DAY
     Route: 048
     Dates: start: 20190507, end: 20191226

REACTIONS (7)
  - Limb fracture [Recovering/Resolving]
  - Hand fracture [Recovering/Resolving]
  - Clavicle fracture [Recovering/Resolving]
  - Dizziness [Unknown]
  - Somnolence [Recovered/Resolved]
  - Sternal fracture [Recovering/Resolving]
  - Road traffic accident [Recovering/Resolving]

NARRATIVE: CASE EVENT DATE: 20191224
